FAERS Safety Report 7807210-1 (Version None)
Quarter: 2011Q4

REPORT INFORMATION
  Report Type: 
  Country: None (occurrence: None)
  Receive Date: 20111011
  Receipt Date: 20110928
  Transmission Date: 20120403
  Serious: Yes (Hospitalization, Other)
  Sender: FDA-Public Use
  Company Number: US-BAYER-2011-023319

PATIENT
  Age: 20 Year
  Sex: Female
  Weight: 70.295 kg

DRUGS (2)
  1. YAZ [Suspect]
     Indication: CONTRACEPTION
     Dosage: UNK
     Route: 048
     Dates: start: 20070918, end: 20090407
  2. YAZ [Suspect]
     Dosage: UNK
     Dates: start: 20090430, end: 20090505

REACTIONS (25)
  - ANXIETY [None]
  - INJURY [None]
  - VARICES OESOPHAGEAL [None]
  - CONSTIPATION [None]
  - VOMITING [None]
  - DIARRHOEA [None]
  - MENTAL DISORDER [None]
  - PORTAL HYPERTENSION [None]
  - ODYNOPHAGIA [None]
  - PORTAL VEIN OCCLUSION [None]
  - INTRA-ABDOMINAL HAEMORRHAGE [None]
  - ABDOMINAL PAIN UPPER [None]
  - FAECES DISCOLOURED [None]
  - WEIGHT DECREASED [None]
  - ABDOMINAL PAIN [None]
  - ANAEMIA [None]
  - SPLENIC VARICES [None]
  - GENERAL PHYSICAL HEALTH DETERIORATION [None]
  - MESENTERIC VEIN THROMBOSIS [None]
  - APHAGIA [None]
  - EMOTIONAL DISTRESS [None]
  - PORTAL VEIN THROMBOSIS [None]
  - NAUSEA [None]
  - TACHYCARDIA [None]
  - GASTRIC VARICES [None]
